FAERS Safety Report 9024945 (Version 2)
Quarter: 2013Q1

REPORT INFORMATION
  Report Type: Spontaneous
  Country: ZA (occurrence: ZA)
  Receive Date: 20130121
  Receipt Date: 20130128
  Transmission Date: 20140127
  Serious: Yes (Other)
  Sender: FDA-Public Use
  Company Number: ZA-JNJFOC-20130108348

PATIENT
  Age: 38 Year
  Sex: Male

DRUGS (1)
  1. NICORETTE 2 MG GUM [Suspect]
     Indication: PRODUCT USED FOR UNKNOWN INDICATION
     Dosage: AVERAGING 15 TO 20 PIECES PER DAY
     Route: 048

REACTIONS (2)
  - Nicotine dependence [Unknown]
  - Intentional drug misuse [Unknown]
